FAERS Safety Report 25369124 (Version 1)
Quarter: 2025Q2

REPORT INFORMATION
  Report Type: Spontaneous
  Country: CN (occurrence: CN)
  Receive Date: 20250528
  Receipt Date: 20250528
  Transmission Date: 20250717
  Serious: Yes (Other)
  Sender: OTSUKA
  Company Number: CN-MMM-Otsuka-K4V1TE57

PATIENT
  Age: 25 Year
  Sex: Male

DRUGS (10)
  1. ABILIFY [Suspect]
     Active Substance: ARIPIPRAZOLE
     Indication: Schizophrenia
     Dosage: 5 MG EVERY DAY
     Route: 048
     Dates: start: 20250403, end: 20250410
  2. ABILIFY [Suspect]
     Active Substance: ARIPIPRAZOLE
     Route: 065
     Dates: start: 202505
  3. CLOZAPINE [Concomitant]
     Active Substance: CLOZAPINE
     Indication: Schizophrenia
     Dosage: 25 MG TWICE A DAY
     Route: 048
     Dates: start: 20250427, end: 20250430
  4. CLOZAPINE [Concomitant]
     Active Substance: CLOZAPINE
     Dosage: 50 MG TWICE A DAY
     Route: 048
     Dates: start: 20250430, end: 20250503
  5. CLOZAPINE [Concomitant]
     Active Substance: CLOZAPINE
     Dosage: 75 MG EVERY DAY
     Route: 048
     Dates: start: 20250503, end: 20250506
  6. CLOZAPINE [Concomitant]
     Active Substance: CLOZAPINE
     Dosage: 50 MG EVERY DAY
     Route: 048
     Dates: start: 20250503, end: 20250506
  7. CLOZAPINE [Concomitant]
     Active Substance: CLOZAPINE
     Dosage: 75 MG TWICE A DAY
     Route: 048
     Dates: start: 20250506, end: 20250508
  8. CLOZAPINE [Concomitant]
     Active Substance: CLOZAPINE
     Dosage: 75 MG EVERY DAY
     Route: 048
     Dates: start: 20250508, end: 20250512
  9. CLOZAPINE [Concomitant]
     Active Substance: CLOZAPINE
     Dosage: 100 MG EVERY DAY
     Route: 048
     Dates: start: 20250508, end: 20250512
  10. CLOZAPINE [Concomitant]
     Active Substance: CLOZAPINE
     Dosage: 100 MG TWICE A DAY
     Route: 048
     Dates: start: 20250512, end: 20250513

REACTIONS (1)
  - Pancreatitis acute [Recovering/Resolving]

NARRATIVE: CASE EVENT DATE: 20250513
